FAERS Safety Report 6026809-9 (Version None)
Quarter: 2009Q1

REPORT INFORMATION
  Report Type: 
  Country: None (occurrence: None)
  Receive Date: 20090105
  Receipt Date: 20081205
  Transmission Date: 20090719
  Serious: No
  Sender: FDA-Public Use
  Company Number: US-BAYER-200840166NA

PATIENT
  Age: 35 Year
  Sex: Male

DRUGS (4)
  1. CIPRO [Suspect]
     Indication: DRUG USE FOR UNKNOWN INDICATION
  2. UROXATRAL [Interacting]
     Dates: start: 20081120
  3. PREVACID [Interacting]
  4. FLAGYL [Interacting]

REACTIONS (2)
  - DIZZINESS [None]
  - DRY MOUTH [None]
